FAERS Safety Report 4318416-0 (Version None)
Quarter: 2004Q1

REPORT INFORMATION
  Report Type: 
  Country: None (occurrence: None)
  Receive Date: 20040315
  Receipt Date: 20040226
  Transmission Date: 20041129
  Serious: Yes (Death, Life-Threatening, Hospitalization)
  Sender: FDA-Public Use
  Company Number: 8004882

PATIENT
  Age: 50 Year
  Sex: Male

DRUGS (5)
  1. KEPPRA [Suspect]
     Indication: EPILEPSY
     Dosage: 1.5 G/D PO
     Route: 048
     Dates: start: 20031124, end: 20031224
  2. PRIMIDONE [Concomitant]
  3. ENALAPRIL (XANEF AND RENACOR) [Concomitant]
  4. ATORVASTATIN [Concomitant]
  5. CITALOPRAM [Concomitant]

REACTIONS (6)
  - CARDIAC FAILURE [None]
  - GRAND MAL CONVULSION [None]
  - PNEUMONIA ASPIRATION [None]
  - SEPSIS [None]
  - SHOCK [None]
  - URINARY TRACT INFECTION [None]
